FAERS Safety Report 13447766 (Version 1)
Quarter: 2017Q2

REPORT INFORMATION
  Report Type: Spontaneous
  Country: US (occurrence: US)
  Receive Date: 20170417
  Receipt Date: 20170417
  Transmission Date: 20170830
  Serious: Yes (Hospitalization)
  Sender: FDA-Public Use
  Company Number: None

PATIENT
  Age: 43 Year
  Sex: Female
  Weight: 73.6 kg

DRUGS (6)
  1. FENTANYL. [Concomitant]
     Active Substance: FENTANYL
  2. MIDAZOLAM [Concomitant]
     Active Substance: MIDAZOLAM HYDROCHLORIDE
  3. CEFAZOLIN [Suspect]
     Active Substance: CEFAZOLIN
     Indication: PROPHYLAXIS
     Route: 042
     Dates: start: 20170311, end: 20170311
  4. LIDOCAINE. [Concomitant]
     Active Substance: LIDOCAINE
  5. EPHEDRINE. [Concomitant]
     Active Substance: EPHEDRINE
  6. PROPOFOL. [Concomitant]
     Active Substance: PROPOFOL

REACTIONS (7)
  - Hypoxia [None]
  - Atelectasis [None]
  - Hypersensitivity [None]
  - Swelling face [None]
  - Product contamination [None]
  - Bradycardia [None]
  - Procedural hypotension [None]

NARRATIVE: CASE EVENT DATE: 20170311
